FAERS Safety Report 21587602 (Version 7)
Quarter: 2023Q1

REPORT INFORMATION
  Report Type: Report from Study
  Country: US (occurrence: US)
  Receive Date: 20221114
  Receipt Date: 20230207
  Transmission Date: 20230418
  Serious: Yes (Hospitalization, Other)
  Sender: FDA-Public Use
  Company Number: US-002147023-NVSC2022US255412

PATIENT
  Sex: Male
  Weight: 110.2 kg

DRUGS (3)
  1. TREPROSTINIL [Suspect]
     Active Substance: TREPROSTINIL
     Indication: Pulmonary arterial hypertension
     Dosage: 20 NG/KG/MIN, CONT
     Route: 042
     Dates: start: 20220811
  2. TREPROSTINIL [Suspect]
     Active Substance: TREPROSTINIL
     Dosage: INCREASED UPTO 12 NG/KG/MIN
     Route: 065
  3. OPSUMIT [Concomitant]
     Active Substance: MACITENTAN
     Indication: Product used for unknown indication
     Dosage: UNK
     Route: 065

REACTIONS (12)
  - Enterococcal infection [Unknown]
  - Haematological infection [Unknown]
  - Dizziness [Unknown]
  - Hypotension [Unknown]
  - Diarrhoea [Unknown]
  - Skin wound [Unknown]
  - Skin discolouration [Unknown]
  - Peripheral swelling [Unknown]
  - Weight decreased [Unknown]
  - Pruritus [Unknown]
  - Headache [Recovering/Resolving]
  - Rash [Unknown]
